FAERS Safety Report 8269076-8 (Version None)
Quarter: 2012Q2

REPORT INFORMATION
  Report Type: 
  Country: None (occurrence: None)
  Receive Date: 20120409
  Receipt Date: 20120329
  Transmission Date: 20120825
  Serious: Yes (Hospitalization)
  Sender: FDA-Public Use
  Company Number: RS-FRI-1000029503

PATIENT
  Age: 60 Year
  Sex: Male

DRUGS (1)
  1. NEBIVOLOL [Suspect]

REACTIONS (1)
  - HEPATOTOXICITY [None]
